FAERS Safety Report 9632540 (Version 1)
Quarter: 2013Q4

REPORT INFORMATION
  Report Type: Spontaneous
  Country: US (occurrence: US)
  Receive Date: 20131018
  Receipt Date: 20131018
  Transmission Date: 20140711
  Serious: Yes (Other)
  Sender: FDA-Public Use
  Company Number: US-CELGENEUS-163-20785-13102917

PATIENT
  Sex: 0

DRUGS (5)
  1. THALOMID [Suspect]
     Indication: EPENDYMOMA
     Route: 048
  2. CELECOXIB [Suspect]
     Indication: EPENDYMOMA
     Route: 048
  3. FENOFIBRATE [Suspect]
     Indication: EPENDYMOMA
     Route: 048
  4. CYCLOPHOSPHAMIDE [Suspect]
     Indication: EPENDYMOMA
     Dosage: ALTERNATING WITH ETOPOSIDE
     Route: 048
  5. ETOPOSIDE [Suspect]
     Indication: EPENDYMOMA
     Dosage: ALTERNATING WITH CYCLOPHOSPHAMIDE
     Route: 048

REACTIONS (1)
  - Acute myeloid leukaemia [Unknown]
